FAERS Safety Report 18015732 (Version 6)
Quarter: 2022Q2

REPORT INFORMATION
  Report Type: Spontaneous
  Country: US (occurrence: US)
  Receive Date: 20200713
  Receipt Date: 20220610
  Transmission Date: 20220721
  Serious: No
  Sender: FDA-Public Use
  Company Number: US-PFIZER INC-2020266928

PATIENT
  Age: 58 Year
  Sex: Male

DRUGS (4)
  1. INLYTA [Suspect]
     Active Substance: AXITINIB
     Dosage: 5 MG
     Dates: start: 20200615
  2. INLYTA [Suspect]
     Active Substance: AXITINIB
     Dosage: 5 MG
     Dates: start: 20200620
  3. INLYTA [Suspect]
     Active Substance: AXITINIB
     Dosage: 5 MG
     Dates: start: 20200630
  4. INLYTA [Suspect]
     Active Substance: AXITINIB
     Dosage: 5 MG

REACTIONS (15)
  - Asthenia [Unknown]
  - Nausea [Unknown]
  - Dyspnoea [Unknown]
  - Dry skin [Not Recovered/Not Resolved]
  - Hypoaesthesia [Unknown]
  - Genital pain [Not Recovered/Not Resolved]
  - Erythema [Unknown]
  - Pollakiuria [Unknown]
  - Lip blister [Unknown]
  - Glossodynia [Unknown]
  - Swollen tongue [Unknown]
  - Pain in extremity [Not Recovered/Not Resolved]
  - Skin fissures [Unknown]
  - Joint swelling [Unknown]
  - Hordeolum [Unknown]
